FAERS Safety Report 5109752-9 (Version None)
Quarter: 2006Q3

REPORT INFORMATION
  Report Type: 
  Country: None (occurrence: None)
  Receive Date: 20060918
  Receipt Date: 20060911
  Transmission Date: 20061208
  Serious: Yes (Life-Threatening)
  Sender: FDA-Public Use
  Company Number: GXKR2006GB05647

PATIENT
  Age: 24 Year
  Sex: Male
  Weight: 65 kg

DRUGS (2)
  1. LORATADINE [Suspect]
     Indication: SEASONAL ALLERGY
     Dosage: 10 MG, ORAL
     Route: 048
     Dates: start: 20060610, end: 20060617
  2. WARFARIN [Concomitant]

REACTIONS (2)
  - TOXIC EPIDERMAL NECROLYSIS [None]
  - VIRAL INFECTION [None]
